FAERS Safety Report 11067819 (Version 1)
Quarter: 2015Q2

REPORT INFORMATION
  Report Type: Spontaneous
  Country: US (occurrence: None)
  Receive Date: 20150424
  Receipt Date: 20150424
  Transmission Date: 20150821
  Serious: Yes (Hospitalization)
  Sender: FDA-Public Use
  Company Number: None

PATIENT
  Age: 5 Year
  Sex: Male
  Weight: 17.3 kg

DRUGS (2)
  1. MELPHALAN [Suspect]
     Active Substance: MELPHALAN
     Dates: end: 20140116
  2. BUSULFAN [Suspect]
     Active Substance: BUSULFAN
     Indication: ASPARTATE AMINOTRANSFERASE INCREASED
     Dates: end: 20140114

REACTIONS (3)
  - Thrombocytopenia [None]
  - Weight increased [None]
  - Gastrointestinal haemorrhage [None]

NARRATIVE: CASE EVENT DATE: 20140206
